FAERS Safety Report 7311457-0 (Version None)
Quarter: 2011Q1

REPORT INFORMATION
  Report Type: 
  Country: None (occurrence: None)
  Receive Date: 20110216
  Receipt Date: 20110216
  Transmission Date: 20110831
  Serious: No
  Sender: FDA-Public Use
  Company Number: None

PATIENT
  Sex: Female
  Weight: 29.0302 kg

DRUGS (7)
  1. ZOLOFT [Concomitant]
  2. BENADRYL [Concomitant]
  3. LAMICTAL [Concomitant]
  4. ABILIFY [Concomitant]
  5. SEROQUEL XR [Suspect]
     Indication: BIPOLAR DISORDER
     Dosage: 150 MG 1 DAILY PO
     Route: 048
     Dates: start: 20110209, end: 20110214
  6. SEROQUEL XR [Suspect]
     Indication: ANXIETY
     Dosage: 150 MG 1 DAILY PO
     Route: 048
     Dates: start: 20110209, end: 20110214
  7. SEROQUEL XR [Suspect]
     Indication: AFFECTIVE DISORDER
     Dosage: 150 MG 1 DAILY PO
     Route: 048
     Dates: start: 20110209, end: 20110214

REACTIONS (3)
  - MUSCLE SPASMS [None]
  - THERAPEUTIC RESPONSE DECREASED [None]
  - GAIT DISTURBANCE [None]
